FAERS Safety Report 20998792 (Version 1)
Quarter: 2022Q2

REPORT INFORMATION
  Report Type: Spontaneous
  Country: US (occurrence: US)
  Receive Date: 20220623
  Receipt Date: 20220623
  Transmission Date: 20220721
  Serious: No
  Sender: FDA-Public Use
  Company Number: US-BEH-2022146808

PATIENT
  Sex: Female

DRUGS (14)
  1. HIZENTRA [Suspect]
     Active Substance: HUMAN IMMUNOGLOBULIN G
     Indication: Immunodeficiency common variable
     Dosage: 16 GRAM, BIW
     Route: 058
  2. REMERON [Concomitant]
     Active Substance: MIRTAZAPINE
  3. DOXYCYCLINE [Concomitant]
     Active Substance: DOXYCYCLINE
  4. WELLBUTRIN [Concomitant]
     Active Substance: BUPROPION HYDROCHLORIDE
  5. CELECOXIB [Concomitant]
     Active Substance: CELECOXIB
  6. EFFEXOR [Concomitant]
     Active Substance: VENLAFAXINE HYDROCHLORIDE
  7. LEVEMIR [Concomitant]
     Active Substance: INSULIN DETEMIR
  8. ADVAIR HFA [Concomitant]
     Active Substance: FLUTICASONE PROPIONATE\SALMETEROL XINAFOATE
  9. CLORAZEPATE DIPOTASSIUM [Concomitant]
     Active Substance: CLORAZEPATE DIPOTASSIUM
  10. FUROSEMIDE [Concomitant]
     Active Substance: FUROSEMIDE
  11. METOLAZONE [Concomitant]
     Active Substance: METOLAZONE
  12. ONDANSETRON [Concomitant]
     Active Substance: ONDANSETRON
  13. PRIMIDONE [Concomitant]
     Active Substance: PRIMIDONE
  14. VRAYLAR [Concomitant]
     Active Substance: CARIPRAZINE

REACTIONS (2)
  - Infusion site pruritus [Not Recovered/Not Resolved]
  - Infusion site swelling [Not Recovered/Not Resolved]
